FAERS Safety Report 24291913 (Version 3)
Quarter: 2024Q4

REPORT INFORMATION
  Report Type: Spontaneous
  Country: DE (occurrence: DE)
  Receive Date: 20240906
  Receipt Date: 20241211
  Transmission Date: 20250115
  Serious: Yes (Other)
  Sender: BRISTOL-MYERS SQUIBB COMPANY
  Company Number: DE-BRISTOL-MYERS SQUIBB COMPANY-2024-140345

PATIENT
  Age: 47 Year
  Sex: Male
  Weight: 117 kg

DRUGS (5)
  1. OPDIVO [Suspect]
     Active Substance: NIVOLUMAB
     Indication: Metastatic malignant melanoma
     Dosage: RECEIVED 4 CYCLES OF 1 MG/KG BW NIVOLUMAB AND 3 MG/KG BW IPILIMUMAB AT 3-WEEK INTERVALS.
     Route: 042
     Dates: start: 20230802, end: 20231004
  2. OPDIVO [Suspect]
     Active Substance: NIVOLUMAB
     Route: 042
     Dates: start: 20231107, end: 20231208
  3. OPDIVO [Suspect]
     Active Substance: NIVOLUMAB
     Route: 042
     Dates: start: 20240109
  4. YERVOY [Suspect]
     Active Substance: IPILIMUMAB
     Indication: Metastatic malignant melanoma
     Dosage: RECEIVED 4 CYCLES OF 1 MG/KG BW NIVOLUMAB AND 3 MG/KG BW IPILIMUMAB AT 3-WEEK INTERVALS.
     Route: 042
     Dates: start: 20230802, end: 20231004
  5. DENOSUMAB [Concomitant]
     Active Substance: DENOSUMAB
     Indication: Metastases to bone
     Route: 058
     Dates: start: 20231220

REACTIONS (4)
  - Malignant neoplasm progression [Recovering/Resolving]
  - Sarcoidosis of lymph node [Not Recovered/Not Resolved]
  - Bronchitis chronic [Recovered/Resolved]
  - Vitiligo [Not Recovered/Not Resolved]

NARRATIVE: CASE EVENT DATE: 20231001
